FAERS Safety Report 5900573-3 (Version None)
Quarter: 2008Q3

REPORT INFORMATION
  Report Type: 
  Country: None (occurrence: None)
  Receive Date: 20080926
  Receipt Date: 20080919
  Transmission Date: 20090109
  Serious: Yes (Other)
  Sender: FDA-Public Use
  Company Number: JP-PFIZER INC-2008071190

PATIENT
  Sex: Male
  Weight: 63 kg

DRUGS (8)
  1. GENOTROPIN [Suspect]
     Indication: HYPOPITUITARISM
     Dosage: DAILY DOSE:.2MG-FREQ:WEEKLY, 6 DOSES PER WEEK
     Route: 058
     Dates: start: 20060830, end: 20061116
  2. GENOTROPIN [Suspect]
     Dosage: DAILY DOSE:.3MG-FREQ:WEEKLY, 6 DOSES PER WEEK
     Route: 058
     Dates: start: 20061116, end: 20061208
  3. GENOTROPIN [Suspect]
     Dosage: DAILY DOSE:.3MG-FREQ:WEEKLY, 6 DOSES PER WEEK
     Route: 058
     Dates: start: 20070111
  4. LEVOTHYROXINE SODIUM [Concomitant]
     Route: 048
  5. CORTONE [Concomitant]
     Route: 048
  6. DEPAKENE [Concomitant]
     Route: 048
  7. SELBEX [Concomitant]
     Indication: GASTRITIS
     Route: 048
  8. DESMOPRESSIN ACETATE [Concomitant]

REACTIONS (1)
  - PNEUMONIA [None]
